FAERS Safety Report 8643187 (Version 2)
Quarter: 2012Q4

REPORT INFORMATION
  Report Type: 
  Country: US (occurrence: US)
  Receive Date: 20120629
  Receipt Date: 20120911
  Transmission Date: 20130627
  Serious: Yes (Hospitalization)
  Sender: FDA-Public Use
  Company Number: US-US-EMD SERONO, INC.-7143021

PATIENT
  Age: 44 None
  Sex: Female
  Weight: 114 kg

DRUGS (7)
  1. REBIF [Suspect]
     Indication: MULTIPLE SCLEROSIS
     Route: 058
  2. REBIF [Suspect]
     Route: 058
     Dates: start: 20120420
  3. CLONAZEPAM [Concomitant]
     Indication: ANXIETY
  4. NORTRIPTYLINE [Concomitant]
     Indication: OESOPHAGEAL SPASM
  5. VERAPAMIL [Concomitant]
     Indication: OESOPHAGEAL SPASM
  6. AMITIZA [Concomitant]
     Indication: IRRITABLE BOWEL SYNDROME
  7. SIMVASTATIN [Concomitant]
     Indication: BLOOD CHOLESTEROL

REACTIONS (3)
  - Vision blurred [Recovered/Resolved]
  - Fatigue [Not Recovered/Not Resolved]
  - Injection site erythema [Not Recovered/Not Resolved]
